FAERS Safety Report 5150764-7 (Version None)
Quarter: 2006Q4

REPORT INFORMATION
  Report Type: 
  Country: None (occurrence: None)
  Receive Date: 20061108
  Receipt Date: 20061010
  Transmission Date: 20070319
  Serious: Yes (Death, Hospitalization)
  Sender: FDA-Public Use
  Company Number: 231002

PATIENT
  Sex: Male

DRUGS (10)
  1. AVASTIN [Suspect]
     Indication: GASTROINTESTINAL CARCINOMA
     Dosage: 840 MG, INTRAVENOUS
     Route: 042
     Dates: start: 20060921, end: 20060929
  2. ERLOTINIB (ERLOTINIB) TABLET, 100MG [Suspect]
     Indication: GASTROINTESTINAL CARCINOMA
     Dosage: 150 MG, ORAL
     Route: 048
     Dates: start: 20060921, end: 20060929
  3. ATENOLOL [Concomitant]
  4. FENTANYL CITRATE [Concomitant]
  5. PINEX (ACETAMINOPHEN) [Concomitant]
  6. AMLODIPINE (AMLODIPINE BESILATE) [Concomitant]
  7. CIPRAMIL (CITALOPRAM) [Concomitant]
  8. PANTOPRAZOLE SODIUM [Concomitant]
  9. PREDNISOLONE [Concomitant]
  10. EMPERAL (METOCLOPRAMIDE HYDROCHLORIDE) [Concomitant]

REACTIONS (9)
  - ABNORMAL FAECES [None]
  - CEREBRAL HAEMORRHAGE [None]
  - DECUBITUS ULCER [None]
  - GASTRIC HAEMORRHAGE [None]
  - HEPATIC FAILURE [None]
  - MALIGNANT NEOPLASM PROGRESSION [None]
  - METASTASES TO LIVER [None]
  - THROMBOCYTOPENIA [None]
  - UNEVALUABLE EVENT [None]
